FAERS Safety Report 25544171 (Version 3)
Quarter: 2025Q3

REPORT INFORMATION
  Report Type: Spontaneous
  Country: EU (occurrence: EU)
  Receive Date: 20250711
  Receipt Date: 20250902
  Transmission Date: 20251020
  Serious: Yes (Congenital Anomaly, Other)
  Sender: TAKEDA
  Company Number: EU-INCYTE CORPORATION-2025IN007411

PATIENT

DRUGS (1)
  1. ICLUSIG [Suspect]
     Active Substance: PONATINIB HYDROCHLORIDE
     Indication: Product used for unknown indication
     Route: 064

REACTIONS (2)
  - Congenital megacolon [Unknown]
  - Foetal exposure during pregnancy [Unknown]
